FAERS Safety Report 15646633 (Version 3)
Quarter: 2019Q2

REPORT INFORMATION
  Report Type: Spontaneous
  Country: GB (occurrence: GB)
  Receive Date: 20181122
  Receipt Date: 20190404
  Transmission Date: 20190711
  Serious: Yes (Hospitalization)
  Sender: FDA-Public Use
  Company Number: GB-TEVA-2018-GB-978344

PATIENT
  Sex: Male

DRUGS (1)
  1. CINQAERO [Suspect]
     Active Substance: RESLIZUMAB
     Route: 042
     Dates: start: 20180720

REACTIONS (3)
  - Product dose omission [Unknown]
  - Ill-defined disorder [Unknown]
  - Drug ineffective [Unknown]

NARRATIVE: CASE EVENT DATE: 20181109
